FAERS Safety Report 5663082-5 (Version None)
Quarter: 2008Q1

REPORT INFORMATION
  Report Type: 
  Country: None (occurrence: None)
  Receive Date: 20080310
  Receipt Date: 20080221
  Transmission Date: 20080703
  Serious: Yes (Other)
  Sender: FDA-Public Use
  Company Number: DSA_02765_2008

PATIENT
  Sex: Female
  Weight: 9.5255 kg

DRUGS (1)
  1. DESONATE [Suspect]
     Indication: ECZEMA
     Dosage: (1 DF BID TOPICAL)
     Route: 061
     Dates: start: 20080126, end: 20080216

REACTIONS (1)
  - IDIOPATHIC THROMBOCYTOPENIC PURPURA [None]
